FAERS Safety Report 8572023-2 (Version None)
Quarter: 2012Q3

REPORT INFORMATION
  Report Type: 
  Country: None (occurrence: None)
  Receive Date: 20120724
  Receipt Date: 20120713
  Transmission Date: 20120928
  Serious: Yes (Other)
  Sender: FDA-Public Use
  Company Number: 2012-002538

PATIENT
  Sex: Female

DRUGS (1)
  1. ASACOL [Suspect]
     Indication: CROHN'S DISEASE
     Dosage: UNK, ORAL
     Route: 048

REACTIONS (1)
  - NEOPLASM MALIGNANT [None]
